FAERS Safety Report 16482739 (Version 1)
Quarter: 2019Q2

REPORT INFORMATION
  Report Type: Spontaneous
  Country: FR (occurrence: FR)
  Receive Date: 20190627
  Receipt Date: 20190627
  Transmission Date: 20190711
  Serious: Yes (Hospitalization)
  Sender: FDA-Public Use
  Company Number: FR-ACCORD-135279

PATIENT
  Age: 73 Year
  Sex: Female
  Weight: 82 kg

DRUGS (7)
  1. LEVOFOLINATE DE CALCIUM ZENTIVA [Concomitant]
     Active Substance: LEVOLEUCOVORIN CALCIUM
     Route: 042
  2. FLUOROURACILE ACCORD [Suspect]
     Active Substance: FLUOROURACIL
     Indication: COLON CANCER
     Route: 042
     Dates: start: 20190514, end: 20190514
  3. ONDANSETRON ACCORD [Concomitant]
     Active Substance: ONDANSETRON
     Route: 042
  4. OXALIPLATINE ACCORD [Suspect]
     Active Substance: OXALIPLATIN
     Indication: COLON CANCER
     Route: 042
     Dates: start: 20190514, end: 20190514
  5. AVASTIN [Suspect]
     Active Substance: BEVACIZUMAB
     Indication: COLON CANCER
     Route: 042
     Dates: start: 20190514, end: 20190514
  6. ROLAPITANT [Concomitant]
     Active Substance: ROLAPITANT
     Route: 048
  7. METHYLPREDNISOLONE MYLAN [Concomitant]
     Active Substance: METHYLPREDNISOLONE
     Route: 042

REACTIONS (1)
  - Bronchospasm [Recovered/Resolved]

NARRATIVE: CASE EVENT DATE: 20190514
